FAERS Safety Report 7754526-3 (Version None)
Quarter: 2011Q3

REPORT INFORMATION
  Report Type: 
  Country: None (occurrence: None)
  Receive Date: 20110915
  Receipt Date: 20110628
  Transmission Date: 20111222
  Serious: No
  Sender: FDA-Public Use
  Company Number: US-BAYER-2011-056007

PATIENT
  Age: 60 Year
  Sex: Male
  Weight: 95.238 kg

DRUGS (4)
  1. CLONAZEPAM [Concomitant]
  2. ULTRAVIST 150 [Concomitant]
     Dosage: UNK
     Route: 048
     Dates: start: 20110628, end: 20110628
  3. NEXIUM [Concomitant]
  4. ULTRAVIST 150 [Suspect]
     Indication: COMPUTERISED TOMOGRAM ABDOMEN
     Dosage: 100 ML, UNK
     Route: 042
     Dates: start: 20110628, end: 20110628

REACTIONS (1)
  - PRURITUS [None]
